FAERS Safety Report 20223046 (Version 1)
Quarter: 2021Q4

REPORT INFORMATION
  Report Type: Spontaneous
  Country: AU (occurrence: AU)
  Receive Date: 20211223
  Receipt Date: 20211223
  Transmission Date: 20220303
  Serious: Yes (Other)
  Sender: FDA-Public Use
  Company Number: AU-MYLANLABS-2010S1014997

PATIENT
  Age: 5 Year
  Sex: Female

DRUGS (1)
  1. EPIPEN [Suspect]
     Active Substance: EPINEPHRINE
     Indication: Anaphylactic reaction
     Dosage: UNK UNK,PRN

REACTIONS (7)
  - Hypertension [Recovered/Resolved]
  - Tachycardia [Recovered/Resolved]
  - Skeletal injury [Unknown]
  - Accidental exposure to product [Unknown]
  - Injection site haematoma [Not Recovered/Not Resolved]
  - Emotional distress [Recovered/Resolved]
  - Incorrect dose administered [Unknown]

NARRATIVE: CASE EVENT DATE: 20100801
